FAERS Safety Report 7926711 (Version 5)
Quarter: 2014Q1

REPORT INFORMATION
  Report Type: Spontaneous
  Country: US (occurrence: US)
  Receive Date: 20110502
  Receipt Date: 20140108
  Transmission Date: 20141002
  Serious: No
  Sender: FDA-Public Use
  Company Number: US-ASTRAZENECA-2011SE06996

PATIENT
  Age: 54 Year
  Sex: Female
  Weight: 96.6 kg

DRUGS (2)
  1. NEXIUM [Suspect]
     Dosage: TWO NEXIUM PER DAY BUT PRESCRIBED ONE PER DAY
     Route: 048
     Dates: start: 2010
  2. MILK OF MAGNESIA [Suspect]
     Route: 065

REACTIONS (16)
  - Throat irritation [Unknown]
  - Hernia [Unknown]
  - Chest pain [Unknown]
  - Dyspepsia [Unknown]
  - Nocturnal dyspnoea [Unknown]
  - Eructation [Unknown]
  - Flatulence [Unknown]
  - Malaise [Unknown]
  - Gastrooesophageal reflux disease [Unknown]
  - Diarrhoea [Unknown]
  - Drug ineffective [Unknown]
  - Back pain [Unknown]
  - Dyspnoea [Unknown]
  - Feeling abnormal [Unknown]
  - Intentional drug misuse [Unknown]
  - Drug dose omission [Unknown]
